FAERS Safety Report 4826216-8 (Version None)
Quarter: 2005Q4

REPORT INFORMATION
  Report Type: 
  Country: None (occurrence: None)
  Receive Date: 20051109
  Receipt Date: 20051028
  Transmission Date: 20060501
  Serious: Yes (Hospitalization, Other)
  Sender: FDA-Public Use
  Company Number: KII-2005-0019332

PATIENT
  Age: 56 Year
  Sex: Male

DRUGS (1)
  1. MORPHINE [Suspect]
     Indication: PAIN
     Dosage: SEE TEXT, ORAL
     Route: 048

REACTIONS (9)
  - ABNORMAL BEHAVIOUR [None]
  - AGGRESSION [None]
  - ASPIRATION [None]
  - COMA [None]
  - CONFUSIONAL STATE [None]
  - DRUG INEFFECTIVE [None]
  - OVERDOSE [None]
  - RESPIRATORY RATE DECREASED [None]
  - RESTLESSNESS [None]
